FAERS Safety Report 8990240 (Version 1)
Quarter: 2012Q4

REPORT INFORMATION
  Report Type: 
  Country: DK (occurrence: IT)
  Receive Date: 20121228
  Receipt Date: 20121228
  Transmission Date: 20130627
  Serious: Yes (Hospitalization)
  Sender: FDA-Public Use
  Company Number: IT-FRI-1000041280

PATIENT
  Age: 86 Year
  Sex: Male

DRUGS (6)
  1. CITALOPRAM [Suspect]
     Indication: PARKINSONISM
     Dosage: 20 mg
     Route: 048
     Dates: end: 20121129
  2. LORAZEPAM [Suspect]
     Indication: INSOMNIA
     Dosage: 1 mg
     Route: 048
     Dates: end: 20121129
  3. MIRAPEXIN [Suspect]
     Indication: PARKINSONISM
     Dates: end: 20121129
  4. VALIUM [Suspect]
     Indication: INSOMNIA
     Dosage: 5 mg
     Route: 048
  5. CONGESCOR [Concomitant]
     Dosage: 5 mg
     Dates: end: 20121129
  6. NORVASC [Concomitant]
     Dosage: 10 mg
     Dates: end: 20121129

REACTIONS (3)
  - Asthenia [Recovering/Resolving]
  - Sopor [Recovering/Resolving]
  - Off label use [Unknown]
